FAERS Safety Report 18152639 (Version 1)
Quarter: 2020Q3

REPORT INFORMATION
  Report Type: Spontaneous
  Country: DE (occurrence: DE)
  Receive Date: 20200814
  Receipt Date: 20200814
  Transmission Date: 20201103
  Serious: Yes (Hospitalization, Other)
  Sender: FDA-Public Use
  Company Number: DE-SA-2020SA209038

PATIENT

DRUGS (13)
  1. CLOPIDOGREL BISULFATE. [Suspect]
     Active Substance: CLOPIDOGREL BISULFATE
     Dosage: 75 MG, QD./ 75 MG, 0?1?0?0
     Route: 048
  2. TORASEMID [Concomitant]
     Active Substance: TORSEMIDE
     Dosage: 100 MG, BID, 100 MG, 1?1?0?0
     Route: 048
  3. FEBUXOSTAT. [Concomitant]
     Active Substance: FEBUXOSTAT
     Dosage: 120 MG, QD, 120 MG, 1?0?0?0
     Route: 048
  4. GABAPENTIN. [Concomitant]
     Active Substance: GABAPENTIN
     Dosage: 300 MG, BID, 300 MG, 1?0?1?0
     Route: 048
  5. LEVEMIR [Concomitant]
     Active Substance: INSULIN DETEMIR
     Dosage: 10 IU, HS, 16 IU, 0?0?0?1
     Route: 058
  6. VITAMIN D [COLECALCIFEROL] [Concomitant]
     Active Substance: CHOLECALCIFEROL
     Dosage: 20,000 IU / 2 WEEKS, SUNDAYS
     Route: 048
  7. PANTOPRAZOLE [Concomitant]
     Active Substance: PANTOPRAZOLE
     Dosage: 40 MG, QD, 40 MG, 1?0?0?0
     Route: 048
  8. KALINOR?RETARD P [Concomitant]
     Dosage: 600 MG, TID, 600 MG, 1?1?1?0
     Route: 048
  9. BISOPROLOL [Concomitant]
     Active Substance: BISOPROLOL
     Dosage: 5 MG, QD, 5 MG, 0?1?0?0
     Route: 048
  10. APIDRA [Concomitant]
     Active Substance: INSULIN GLULISINE
     Dosage: ACCORDING TO SCHEME
     Route: 058
  11. LEVOTHYROXINE SODIUM;POTASSIUM IODIDE [Concomitant]
     Dosage: UNK UNK, QD, 150|75 ?G, 1?0?0?0
     Route: 048
  12. TAMSULOSIN [Concomitant]
     Active Substance: TAMSULOSIN
     Dosage: 0.4 MG, QD, 0.4 MG, 0?0?1?0
     Route: 048
  13. SIMVASTATIN. [Concomitant]
     Active Substance: SIMVASTATIN
     Dosage: 40 MG, QD, 40 MG, 0?0?1?0
     Route: 048

REACTIONS (4)
  - Syncope [Unknown]
  - Cough [Unknown]
  - Haemothorax [Unknown]
  - Dyspnoea [Unknown]
